FAERS Safety Report 21901788 (Version 1)
Quarter: 2023Q1

REPORT INFORMATION
  Report Type: Spontaneous
  Country: US (occurrence: US)
  Receive Date: 20230124
  Receipt Date: 20230124
  Transmission Date: 20230417
  Serious: No
  Sender: FDA-Public Use
  Company Number: US-JNJFOC-20221262397

PATIENT
  Age: 74 Year
  Sex: Female
  Weight: 68 kg

DRUGS (6)
  1. PEPCID [Suspect]
     Active Substance: FAMOTIDINE
     Indication: Rash macular
     Route: 065
     Dates: start: 2022
  2. PEPCID [Suspect]
     Active Substance: FAMOTIDINE
     Indication: Rash pruritic
  3. PEPCID [Suspect]
     Active Substance: FAMOTIDINE
     Indication: Rash vesicular
  4. TYVASO [Concomitant]
     Active Substance: TREPROSTINIL
     Indication: Pulmonary arterial hypertension
     Route: 055
     Dates: start: 20221101
  5. ELIQUIS [Concomitant]
     Active Substance: APIXABAN
     Indication: Product used for unknown indication
     Route: 065
  6. SILDENAFIL CITRATE [Concomitant]
     Active Substance: SILDENAFIL CITRATE
     Indication: Product used for unknown indication
     Route: 065

REACTIONS (2)
  - Rash vesicular [Unknown]
  - Product use in unapproved indication [Unknown]

NARRATIVE: CASE EVENT DATE: 20220101
